FAERS Safety Report 12784799 (Version 1)
Quarter: 2016Q3

REPORT INFORMATION
  Report Type: Spontaneous
  Country: US (occurrence: US)
  Receive Date: 20160927
  Receipt Date: 20160927
  Transmission Date: 20161109
  Serious: Yes (Other)
  Sender: FDA-Public Use
  Company Number: US-LPDUSPRD-20160829

PATIENT
  Age: 63 Year
  Sex: Female

DRUGS (21)
  1. LIPITOR [Concomitant]
     Active Substance: ATORVASTATIN CALCIUM
     Route: 065
  2. LORAZEPAM. [Concomitant]
     Active Substance: LORAZEPAM
     Route: 065
  3. VITAMIN D [Concomitant]
     Active Substance: CHOLECALCIFEROL
     Route: 065
  4. ZANTAC [Concomitant]
     Active Substance: RANITIDINE HYDROCHLORIDE
     Route: 065
  5. IRINOTECAN [Suspect]
     Active Substance: IRINOTECAN
     Route: 065
     Dates: start: 2007
  6. CITALOPRAM [Concomitant]
     Active Substance: CITALOPRAM HYDROBROMIDE
     Route: 065
  7. ZOLPIDEM [Concomitant]
     Active Substance: ZOLPIDEM\ZOLPIDEM TARTRATE
     Route: 065
  8. ZOFRAN [Concomitant]
     Active Substance: ONDANSETRON HYDROCHLORIDE
     Route: 065
  9. METOPROLOL. [Concomitant]
     Active Substance: METOPROLOL
     Route: 065
  10. MECLIZINE [Concomitant]
     Active Substance: MECLIZINE HYDROCHLORIDE
     Route: 065
  11. XELODA [Suspect]
     Active Substance: CAPECITABINE
     Route: 065
     Dates: start: 201005
  12. FLUOROURACIL. [Suspect]
     Active Substance: FLUOROURACIL
     Route: 065
     Dates: start: 2007
  13. LANSOPRAZOLE. [Suspect]
     Active Substance: LANSOPRAZOLE
     Route: 065
  14. LEUCOVORIN CALCIUM INJECTION (0517-8605-25) [Suspect]
     Active Substance: LEUCOVORIN CALCIUM
     Route: 065
     Dates: start: 2007
  15. BENADRYL [Concomitant]
     Active Substance: DIPHENHYDRAMINE HYDROCHLORIDE
     Route: 065
  16. METFORMIN [Suspect]
     Active Substance: METFORMIN HYDROCHLORIDE
     Route: 065
  17. CELECOXIB. [Concomitant]
     Active Substance: CELECOXIB
     Route: 065
  18. LOPERAMIDE [Concomitant]
     Active Substance: LOPERAMIDE
     Route: 065
  19. HYDROCODONE [Concomitant]
     Active Substance: HYDROCODONE
     Route: 065
  20. AMITRIPTYLINE [Concomitant]
     Active Substance: AMITRIPTYLINE
     Route: 065
  21. AVASTIN [Suspect]
     Active Substance: BEVACIZUMAB
     Route: 065
     Dates: start: 2007

REACTIONS (2)
  - Gastrointestinal disorder [Unknown]
  - Hypomagnesaemia [Unknown]
